FAERS Safety Report 4686007-8 (Version None)
Quarter: 2005Q2

REPORT INFORMATION
  Report Type: 
  Country: None (occurrence: None)
  Receive Date: 20050606
  Receipt Date: 20050520
  Transmission Date: 20051028
  Serious: Yes (Hospitalization, Other)
  Sender: FDA-Public Use
  Company Number: 2005BI001579

PATIENT
  Sex: Female

DRUGS (4)
  1. AVONEX [Suspect]
     Indication: MULTIPLE SCLEROSIS
     Dosage: 30 UG; QW; IM
     Route: 030
     Dates: start: 20001001, end: 20021201
  2. AVONEX [Suspect]
     Indication: MULTIPLE SCLEROSIS
     Dosage: IM
     Route: 030
     Dates: start: 20050512
  3. BETASERON [Concomitant]
  4. REBIF [Concomitant]

REACTIONS (9)
  - CARDIAC ARREST [None]
  - CORONARY ARTERY DISEASE [None]
  - INJECTION SITE INFECTION [None]
  - LIVER FUNCTION TEST ABNORMAL [None]
  - LUNG DISORDER [None]
  - MYOCARDIAL INFARCTION [None]
  - RESPIRATORY FAILURE [None]
  - STAPHYLOCOCCAL INFECTION [None]
  - WEIGHT DECREASED [None]
